FAERS Safety Report 13084742 (Version 1)
Quarter: 2017Q1

REPORT INFORMATION
  Report Type: Spontaneous
  Country: NL (occurrence: NL)
  Receive Date: 20170104
  Receipt Date: 20170104
  Transmission Date: 20170428
  Serious: Yes (Hospitalization)
  Sender: FDA-Public Use
  Company Number: NL-TEVA-725556ACC

PATIENT
  Age: 69 Year
  Sex: Male
  Weight: 76 kg

DRUGS (5)
  1. CLOPIDOGREL TABLET 75MG (BESILAAT) [Concomitant]
     Dosage: 75 MILLIGRAM DAILY; 1 TIME PER DAY 1 PIECE(S)
     Route: 048
     Dates: start: 20150921
  2. AMLODIPINE TABLET 10MG (BESILAAT) [Concomitant]
     Dosage: 10 MILLIGRAM DAILY; 1 TIME PER DAY 1 PIECE(S)
     Route: 048
     Dates: start: 20060920
  3. SIMVASTATINE TABLET FO 40MG [Concomitant]
     Dosage: 40 MILLIGRAM DAILY; 1 TIME PER DAY 1 PIECE(S)
     Route: 048
     Dates: start: 20150924
  4. PANTOPRAZOL TABLET MSR 40MG [Concomitant]
     Active Substance: PANTOPRAZOLE SODIUM
     Dosage: 40 MILLIGRAM DAILY; 1 TIME PER DAY 1 PIECE(S)
     Route: 048
     Dates: start: 20140701
  5. HYDROCHLOORTHIAZIDE TABLET 12,5MG [Suspect]
     Active Substance: HYDROCHLOROTHIAZIDE
     Indication: HYPERTENSION
     Dosage: 12.5 MILLIGRAM DAILY; 1 TIME PER DAY 1 PIECE(S)
     Route: 048
     Dates: start: 20161216, end: 20161217

REACTIONS (1)
  - Tongue oedema [Recovered/Resolved]

NARRATIVE: CASE EVENT DATE: 20161216
